FAERS Safety Report 11141239 (Version 1)
Quarter: 2015Q2

REPORT INFORMATION
  Report Type: Spontaneous
  Country: US (occurrence: US)
  Receive Date: 20150527
  Receipt Date: 20150527
  Transmission Date: 20150821
  Serious: Yes (Hospitalization, Other)
  Sender: FDA-Public Use
  Company Number: US-AMGEN-USASP2015050418

PATIENT
  Age: 72 Year
  Sex: Female

DRUGS (1)
  1. ENBREL [Suspect]
     Active Substance: ETANERCEPT
     Indication: RHEUMATOID ARTHRITIS
     Dosage: 50 MG, QWK
     Route: 065
     Dates: start: 20130418

REACTIONS (7)
  - Fall [Recovered/Resolved]
  - Head injury [Not Recovered/Not Resolved]
  - Cerebrovascular accident [Recovered/Resolved]
  - Hip fracture [Recovered/Resolved]
  - Asthenia [Recovered/Resolved]
  - Musculoskeletal disorder [Not Recovered/Not Resolved]
  - Chondrolysis [Recovered/Resolved]

NARRATIVE: CASE EVENT DATE: 201503
